FAERS Safety Report 5808097-9 (Version None)
Quarter: 2008Q3

REPORT INFORMATION
  Report Type: 
  Country: None (occurrence: None)
  Receive Date: 20080711
  Receipt Date: 20080630
  Transmission Date: 20090109
  Serious: Yes (Other)
  Sender: FDA-Public Use
  Company Number: US-PFIZER INC-2008054593

PATIENT
  Sex: Female
  Weight: 133.4 kg

DRUGS (8)
  1. METHYLPREDNISOLONE SODIUM SUCCINATE [Suspect]
     Indication: LYME DISEASE
     Dosage: FREQ:FREQUENCY: ONCE
     Route: 042
  2. REBIF [Suspect]
     Indication: MULTIPLE SCLEROSIS
     Dosage: DAILY DOSE:44MCG-FREQ:FREQUENCY: 3 IN 1 WEEKS
     Route: 058
     Dates: start: 20080423, end: 20080530
  3. METFORMIN [Concomitant]
     Indication: DIABETES MELLITUS
  4. HUMULIN R [Concomitant]
     Indication: DIABETES MELLITUS
  5. VALSARTAN [Concomitant]
     Indication: HYPERTENSION
  6. PROTONIX [Concomitant]
     Indication: OESOPHAGEAL SPASM
  7. PROTONIX [Concomitant]
  8. PEPCID [Concomitant]
     Indication: OESOPHAGEAL SPASM

REACTIONS (3)
  - BLOOD MAGNESIUM DECREASED [None]
  - BLOOD POTASSIUM DECREASED [None]
  - DIABETIC KETOACIDOSIS [None]
